FAERS Safety Report 5047603-1 (Version None)
Quarter: 2006Q3

REPORT INFORMATION
  Report Type: 
  Country: None (occurrence: None)
  Receive Date: 20060705
  Receipt Date: 20060627
  Transmission Date: 20061208
  Serious: Yes (Hospitalization)
  Sender: FDA-Public Use
  Company Number: 2006-02619

PATIENT
  Age: 76 Year
  Sex: Female

DRUGS (7)
  1. DICYCLOMINE [Suspect]
     Indication: PAIN
     Dosage: ORAL
     Route: 048
  2. FLONASE [Suspect]
     Indication: EAR DISORDER
     Dosage: 2 SPRAYS, DAILY, NASAL
     Route: 045
     Dates: start: 20050101
  3. CARTIA XT [Suspect]
     Indication: HYPERTENSION
     Dates: end: 20060601
  4. THYROXINE SODIUM [Concomitant]
  5. FIBER [Concomitant]
  6. LOMOTIL [Concomitant]
  7. MIDRIN (PARACETAMOL) [Concomitant]

REACTIONS (6)
  - CARDIAC DISORDER [None]
  - DEHYDRATION [None]
  - DIVERTICULITIS [None]
  - DIVERTICULUM [None]
  - FATIGUE [None]
  - PAIN [None]
